FAERS Safety Report 18508197 (Version 2)
Quarter: 2020Q4

REPORT INFORMATION
  Report Type: Spontaneous
  Country: US (occurrence: US)
  Receive Date: 20201116
  Receipt Date: 20201217
  Transmission Date: 20210114
  Serious: No
  Sender: FDA-Public Use
  Company Number: US-PFIZER INC-2020449381

PATIENT
  Age: 57 Year
  Sex: Male
  Weight: 138 kg

DRUGS (1)
  1. SOMAVERT [Suspect]
     Active Substance: PEGVISOMANT
     Indication: ILLNESS
     Dosage: 10 MG, DAILY
     Route: 058

REACTIONS (3)
  - Injection site bruising [Recovered/Resolved]
  - Therapy cessation [Unknown]
  - Insulin-like growth factor increased [Unknown]
